FAERS Safety Report 9292013 (Version 1)
Quarter: 2013Q2

REPORT INFORMATION
  Report Type: Spontaneous
  Country: US (occurrence: US)
  Receive Date: 20130516
  Receipt Date: 20130516
  Transmission Date: 20140414
  Serious: No
  Sender: FDA-Public Use
  Company Number: US-PFIZER INC-2013145211

PATIENT
  Age: 43 Year
  Sex: Male
  Weight: 104 kg

DRUGS (8)
  1. VIAGRA [Suspect]
     Indication: PAIN
     Dosage: UNK
  2. DIAZEPAM [Suspect]
     Indication: ANXIETY
     Dosage: 20 MG (2 X 10 MG), 2X/DAY
  3. CLOMIPRAMINE HYDROCHLORIDE [Suspect]
     Indication: OBSESSIVE-COMPULSIVE DISORDER
     Dosage: 100 MG, UNK
     Dates: start: 2013
  4. CLOMIPRAMINE HYDROCHLORIDE [Suspect]
     Dosage: 300 MG, UNK
     Dates: start: 2013
  5. PROPRANOLOL [Suspect]
     Indication: HOT FLUSH
     Dosage: 10 MG, 6X/DAY
     Dates: start: 2013
  6. PROPRANOLOL [Suspect]
     Indication: ANXIETY
  7. AMPHETAMINE [Suspect]
     Indication: SOMNOLENCE
     Dosage: 30 MG, 1X/DAY
  8. SIMVASTATIN [Concomitant]
     Indication: BLOOD CHOLESTEROL INCREASED
     Dosage: 40 MG, 1X/DAY

REACTIONS (6)
  - Depression [Unknown]
  - Tremor [Unknown]
  - Libido decreased [Unknown]
  - Somnolence [Unknown]
  - Hot flush [Unknown]
  - Off label use [Unknown]
